FAERS Safety Report 5318688-X (Version None)
Quarter: 2007Q2

REPORT INFORMATION
  Report Type: 
  Country: None (occurrence: None)
  Receive Date: 20070503
  Receipt Date: 20070503
  Transmission Date: 20071010
  Serious: Yes (Other)
  Sender: FDA-Public Use
  Company Number: None

PATIENT
  Sex: Female
  Weight: 90.7194 kg

DRUGS (1)
  1. BUPROPION HCL [Suspect]
     Indication: DEPRESSION
     Dosage: 150 MG 2/DAY MONTH
     Dates: start: 20070423

REACTIONS (3)
  - DRUG DISPENSING ERROR [None]
  - IMPAIRED DRIVING ABILITY [None]
  - NAUSEA [None]
